FAERS Safety Report 5165126-6 (Version None)
Quarter: 2006Q4

REPORT INFORMATION
  Report Type: 
  Country: None (occurrence: None)
  Receive Date: 20061127
  Receipt Date: 20061115
  Transmission Date: 20070319
  Serious: Yes (Hospitalization)
  Sender: FDA-Public Use
  Company Number: HQWYE748516NOV06

PATIENT
  Age: 68 Year
  Sex: Female

DRUGS (1)
  1. CORDARONE [Suspect]
     Indication: ATRIAL FIBRILLATION
     Dosage: ORAL
     Route: 048
     Dates: start: 20020101, end: 20060916

REACTIONS (13)
  - ALANINE AMINOTRANSFERASE INCREASED [None]
  - ALVEOLITIS [None]
  - ASPARTATE AMINOTRANSFERASE INCREASED [None]
  - BLOOD ALKALINE PHOSPHATASE INCREASED [None]
  - CHOLESTASIS [None]
  - EOSINOPHILIA [None]
  - GAMMA-GLUTAMYLTRANSFERASE INCREASED [None]
  - GENERAL PHYSICAL HEALTH DETERIORATION [None]
  - HEPATOTOXICITY [None]
  - INFLAMMATION [None]
  - PULMONARY EOSINOPHILIA [None]
  - PULMONARY TOXICITY [None]
  - RESPIRATORY DISTRESS [None]
